FAERS Safety Report 10412225 (Version 1)
Quarter: 2014Q2

REPORT INFORMATION
  Report Type: Spontaneous
  Country: US (occurrence: None)
  Receive Date: 20140604
  Receipt Date: 20140604
  Transmission Date: 20141212
  Serious: Yes (Hospitalization)
  Sender: FDA-Public Use
  Company Number: 163-POMAL-14030562

PATIENT
  Sex: Female

DRUGS (3)
  1. POMALYST (POMALIDOMIDE) [Suspect]
     Indication: PLASMA CELL MYELOMA
     Dosage: 21 IN 21D TEMPORARY INTERRUTED
     Dates: start: 20130507
  2. TORSEMIDE (TORASEMIDE) [Concomitant]
  3. ZOMETA (ZOLEDRONIC ACID) [Concomitant]

REACTIONS (2)
  - Congestive cardiomyopathy [None]
  - Cardiac failure congestive [None]
